FAERS Safety Report 7030280-8 (Version None)
Quarter: 2010Q4

REPORT INFORMATION
  Report Type: 
  Country: None (occurrence: None)
  Receive Date: 20101006
  Receipt Date: 20100923
  Transmission Date: 20110411
  Serious: Yes (Other)
  Sender: FDA-Public Use
  Company Number: FR-JNJFOC-20101000993

PATIENT
  Sex: Female

DRUGS (5)
  1. TOPALGIC [Suspect]
     Indication: PRODUCT USED FOR UNKNOWN INDICATION
     Route: 065
  2. EFFERALGAN CODEINE [Concomitant]
  3. TETRAZEPAM [Concomitant]
  4. CIMETIDINE [Concomitant]
  5. AMILORIDE HCL AND HYDROCHLOROTHIAZIDE [Concomitant]

REACTIONS (2)
  - DRUG DEPENDENCE [None]
  - PRESCRIPTION FORM TAMPERING [None]
